FAERS Safety Report 21081366 (Version 4)
Quarter: 2023Q1

REPORT INFORMATION
  Report Type: Report from Study
  Country: US (occurrence: US)
  Receive Date: 20220714
  Receipt Date: 20230123
  Transmission Date: 20230418
  Serious: Yes (Hospitalization)
  Sender: FDA-Public Use
  Company Number: US-AMGEN-USACT2022118312

PATIENT
  Age: 79 Year
  Sex: Male
  Weight: 93.73 kg

DRUGS (16)
  1. SOTORASIB [Suspect]
     Active Substance: SOTORASIB
     Indication: K-ras gene mutation
     Dosage: 480 MILLIGRAM
     Route: 048
     Dates: start: 20220329, end: 20220701
  2. SOTORASIB [Suspect]
     Active Substance: SOTORASIB
     Indication: Non-small cell lung cancer stage IV
     Dosage: UNK
     Route: 048
     Dates: start: 20220713
  3. DOCETAXEL [Suspect]
     Active Substance: DOCETAXEL
     Indication: K-ras gene mutation
     Dosage: 75 MILLIGRAM
     Route: 058
     Dates: start: 20210412, end: 20220208
  4. DOCETAXEL [Suspect]
     Active Substance: DOCETAXEL
     Indication: Non-small cell lung cancer stage IV
  5. GLIPIZIDE [Concomitant]
     Active Substance: GLIPIZIDE
     Dosage: 5 MILLIGRAM
     Route: 048
     Dates: start: 20200616
  6. ALOGLIPTIN [Concomitant]
     Active Substance: ALOGLIPTIN
     Dosage: 12.5 MILLIGRAM
     Route: 048
     Dates: start: 201904
  7. LOPERAMIDE [Concomitant]
     Active Substance: LOPERAMIDE
     Dosage: 2 MILLIGRAM
     Route: 048
     Dates: start: 202104
  8. METFORMIN [Concomitant]
     Active Substance: METFORMIN HYDROCHLORIDE
     Dosage: 1000 MILLIGRAM
     Route: 048
     Dates: start: 20210412
  9. ASPIRIN [Concomitant]
     Active Substance: ASPIRIN
     Dosage: 81 MILLIGRAM
     Route: 048
     Dates: start: 20220117
  10. HEPARIN [Concomitant]
     Active Substance: HEPARIN SODIUM
     Dosage: 25000 UNK
     Route: 042
     Dates: start: 20220116
  11. INSULIN LISPRO [Concomitant]
     Active Substance: INSULIN LISPRO
     Dosage: 100 UNK
     Route: 058
     Dates: start: 202104
  12. OXYCODONE [Concomitant]
     Active Substance: OXYCODONE
     Dosage: 5 MILLIGRAM
     Route: 048
     Dates: start: 202104
  13. DILAUDID [Concomitant]
     Active Substance: HYDROMORPHONE HYDROCHLORIDE
     Dosage: 1 MILLIGRAM
     Route: 042
     Dates: start: 202104
  14. SENNA [Concomitant]
     Active Substance: SENNA LEAF\SENNOSIDES\SENNOSIDES A AND B
     Dosage: 8.6 MILLIGRAM
     Route: 048
     Dates: start: 202104
  15. DEXAMETHASONE [Concomitant]
     Active Substance: DEXAMETHASONE
     Dosage: UNK
     Route: 065
     Dates: start: 20210412
  16. METOPROLOL [Concomitant]
     Active Substance: METOPROLOL
     Dosage: UNK

REACTIONS (1)
  - Acute kidney injury [Recovered/Resolved]

NARRATIVE: CASE EVENT DATE: 20220701
